FAERS Safety Report 8130092-8 (Version None)
Quarter: 2012Q1

REPORT INFORMATION
  Report Type: 
  Country: None (occurrence: None)
  Receive Date: 20120210
  Receipt Date: 20120207
  Transmission Date: 20120608
  Serious: Yes (Other)
  Sender: FDA-Public Use
  Company Number: VE-PFIZER INC-2012033203

PATIENT
  Sex: Female

DRUGS (1)
  1. VARENICLINE TARTRATE [Suspect]
     Dosage: 0.5 MG, UNK

REACTIONS (2)
  - FEELING OF DESPAIR [None]
  - NICOTINE DEPENDENCE [None]
